FAERS Safety Report 20353858 (Version 1)
Quarter: 2022Q1

REPORT INFORMATION
  Report Type: Spontaneous
  Country: FR (occurrence: FR)
  Receive Date: 20220120
  Receipt Date: 20220120
  Transmission Date: 20220424
  Serious: Yes (Other)
  Sender: FDA-Public Use
  Company Number: FR-AFSSAPS-AVTO20212256

PATIENT
  Age: 22 Year
  Sex: Female

DRUGS (1)
  1. PREGABALIN [Suspect]
     Active Substance: PREGABALIN
     Indication: Product used for unknown indication
     Dosage: 900 MILLIGRAM, UNK
     Route: 065
     Dates: start: 20210911, end: 20210912

REACTIONS (2)
  - Product use in unapproved indication [Recovered/Resolved]
  - Seizure [Recovered/Resolved]

NARRATIVE: CASE EVENT DATE: 20210911
